FAERS Safety Report 7785467-3 (Version None)
Quarter: 2011Q3

REPORT INFORMATION
  Report Type: 
  Country: None (occurrence: None)
  Receive Date: 20110929
  Receipt Date: 20110923
  Transmission Date: 20111222
  Serious: Yes (Death)
  Sender: FDA-Public Use
  Company Number: PHHY2011US68662

PATIENT
  Sex: Male
  Weight: 118.82 kg

DRUGS (5)
  1. AMLODIPINE [Concomitant]
     Dosage: 5 MG, QD
     Route: 048
     Dates: start: 20050101, end: 20110721
  2. AMTURNIDE [Suspect]
     Indication: HYPERTENSION
     Dosage: 1 DF, QD
     Route: 048
     Dates: start: 20110721
  3. METOPROLOL TARTRATE [Concomitant]
     Dosage: 50 MG, BID
     Route: 048
     Dates: start: 20050101, end: 20110721
  4. HYDROCHLOROTHIAZIDE [Concomitant]
     Dosage: 12.5 MG, BID
     Dates: start: 20050101, end: 20110721
  5. LISINOPRIL [Concomitant]
     Dosage: 20 MG, BID
     Route: 048
     Dates: start: 20050101, end: 20110721

REACTIONS (1)
  - DEATH [None]
